FAERS Safety Report 8893742 (Version 2)
Quarter: 2012Q4

REPORT INFORMATION
  Report Type: 
  Country: US (occurrence: US)
  Receive Date: 20121108
  Receipt Date: 20121227
  Transmission Date: 20130627
  Serious: No
  Sender: FDA-Public Use
  Company Number: US-PFIZER INC-2012276864

PATIENT
  Age: 67 Year
  Sex: Female
  Weight: 55.33 kg

DRUGS (2)
  1. PREMARIN VAGINAL CREAM [Suspect]
     Dosage: a pea size amount, daily at night
     Route: 067
     Dates: start: 20120927, end: 201211
  2. PREMARIN VAGINAL CREAM [Suspect]
     Dosage: 0.625 mg, UNK

REACTIONS (2)
  - Vulvovaginal pruritus [Not Recovered/Not Resolved]
  - Drug ineffective [Unknown]
